FAERS Safety Report 24748037 (Version 1)
Quarter: 2024Q4

REPORT INFORMATION
  Report Type: Spontaneous
  Country: US (occurrence: None)
  Receive Date: 20241217
  Receipt Date: 20241217
  Transmission Date: 20250115
  Serious: No
  Sender: Public
  Company Number: None

PATIENT
  Age: 87 Year
  Sex: Male

DRUGS (1)
  1. JAKAFI [Suspect]
     Active Substance: RUXOLITINIB
     Indication: Leukaemia
     Dosage: FREQUENCY : DAILY;?OTHER ROUTE : MOUTH;?
     Route: 050
     Dates: start: 20240822

REACTIONS (1)
  - Asthenia [None]

NARRATIVE: CASE EVENT DATE: 20241217
